FAERS Safety Report 7843167-5 (Version None)
Quarter: 2011Q4

REPORT INFORMATION
  Report Type: 
  Country: None (occurrence: None)
  Receive Date: 20111025
  Receipt Date: 20111019
  Transmission Date: 20120403
  Serious: No
  Sender: FDA-Public Use
  Company Number: US-PFIZER INC-2011253775

PATIENT
  Sex: Male

DRUGS (8)
  1. TRIAMTERENE AND HYDROCHLOROTHIAZIDE [Concomitant]
     Dosage: 25-50 MG
  2. SUTENT [Suspect]
     Dosage: 50 MG, 1X/DAY FOR 4 WEEKS FOLLOWED BY A REST PERIOD OF 2 WEEKS
     Route: 048
  3. DIOVAN HCT [Concomitant]
     Dosage: 160/12.5
  4. PREVACID [Concomitant]
     Dosage: 15 MG, UNK
  5. CRESTOR [Concomitant]
     Dosage: 10 MG, UNK
  6. ACETYLSALICYLIC ACID [Concomitant]
     Dosage: 81 MG, UNK
  7. NIACIN [Concomitant]
     Dosage: 250 MG, UNK
  8. NORVASC [Concomitant]
     Dosage: 10 MG, UNK

REACTIONS (2)
  - ORAL PAIN [None]
  - NAUSEA [None]
